FAERS Safety Report 15440424 (Version 1)
Quarter: 2018Q3

REPORT INFORMATION
  Report Type: Spontaneous
  Country: PL (occurrence: PL)
  Receive Date: 20180928
  Receipt Date: 20180928
  Transmission Date: 20181010
  Serious: Yes (Other)
  Sender: FDA-Public Use
  Company Number: PL-PFIZER INC-2018385381

PATIENT
  Age: 57 Year
  Sex: Female

DRUGS (6)
  1. PREDNISONE. [Suspect]
     Active Substance: PREDNISONE
     Indication: B-CELL LYMPHOMA
     Dosage: 8 CYCLES
     Route: 065
     Dates: start: 201309, end: 201402
  2. RITUXIMAB. [Suspect]
     Active Substance: RITUXIMAB
     Indication: B-CELL LYMPHOMA
     Dosage: 8 CYCLES; NUMBER OF UNITS IN THE INTERVAL: 8 WEEK
     Route: 065
     Dates: start: 201309, end: 201402
  3. CYCLOPHOSPHAMIDE. [Suspect]
     Active Substance: CYCLOPHOSPHAMIDE
     Indication: B-CELL LYMPHOMA
     Dosage: 8 CYCLES
     Route: 065
     Dates: start: 201309, end: 201402
  4. RITUXIMAB. [Suspect]
     Active Substance: RITUXIMAB
     Dosage: MAINTENANCE TREATMENT
     Route: 065
     Dates: start: 201407, end: 201509
  5. VINCRISTINE [Suspect]
     Active Substance: VINCRISTINE
     Indication: B-CELL LYMPHOMA
     Dosage: 8 CYCLES
     Route: 065
     Dates: start: 201309, end: 201402
  6. DOXORUBICIN HCL [Suspect]
     Active Substance: DOXORUBICIN HYDROCHLORIDE
     Indication: B-CELL LYMPHOMA
     Dosage: 8 CYCLES
     Route: 065
     Dates: start: 201309, end: 201402

REACTIONS (8)
  - Blood lactate dehydrogenase increased [Unknown]
  - Hepatomegaly [Unknown]
  - Beta 2 microglobulin decreased [Unknown]
  - Intestinal mass [Unknown]
  - Diffuse large B-cell lymphoma [Unknown]
  - Lymphadenopathy [Unknown]
  - Pleural effusion [Unknown]
  - Second primary malignancy [Unknown]
